FAERS Safety Report 17691550 (Version 1)
Quarter: 2020Q2

REPORT INFORMATION
  Report Type: Spontaneous
  Country: FR (occurrence: FR)
  Receive Date: 20200422
  Receipt Date: 20200422
  Transmission Date: 20200714
  Serious: Yes (Hospitalization, Other)
  Sender: FDA-Public Use
  Company Number: FR-GLAXOSMITHKLINE-FR2020068455

PATIENT
  Age: 19 Year
  Sex: Male
  Weight: 79 kg

DRUGS (4)
  1. OROKEN [Suspect]
     Active Substance: CEFIXIME
     Indication: BRONCHITIS
     Dosage: UNK
     Route: 048
     Dates: start: 20200217, end: 20200223
  2. DOLIPRANE [Suspect]
     Active Substance: ACETAMINOPHEN
     Indication: PYREXIA
     Dosage: UNK
     Route: 048
     Dates: start: 20200217, end: 20200223
  3. TUSSIDANE [Suspect]
     Active Substance: DEXTROMETHORPHAN HYDROBROMIDE
     Indication: BRONCHITIS
     Dosage: UNK
     Route: 048
     Dates: start: 20200217, end: 20200223
  4. BECONASE AQ [Suspect]
     Active Substance: BECLOMETHASONE DIPROPIONATE MONOHYDRATE
     Indication: BRONCHITIS
     Dosage: UNK
     Route: 045
     Dates: start: 20200217, end: 20200223

REACTIONS (1)
  - Immune thrombocytopenia [Recovering/Resolving]

NARRATIVE: CASE EVENT DATE: 20200311
